FAERS Safety Report 13497164 (Version 1)
Quarter: 2017Q2

REPORT INFORMATION
  Report Type: Report from Study
  Country: CH (occurrence: CH)
  Receive Date: 20170428
  Receipt Date: 20170428
  Transmission Date: 20170830
  Serious: Yes (Death, Other)
  Sender: FDA-Public Use
  Company Number: CH-CELGENEUS-CHE-2015072217

PATIENT

DRUGS (3)
  1. RITUXIMAB [Concomitant]
     Active Substance: RITUXIMAB
     Indication: NON-HODGKIN^S LYMPHOMA
     Route: 065
  2. BENDAMUSTINE [Concomitant]
     Active Substance: BENDAMUSTINE
     Indication: NON-HODGKIN^S LYMPHOMA
     Route: 065
  3. REVLIMID [Suspect]
     Active Substance: LENALIDOMIDE
     Indication: NON-HODGKIN^S LYMPHOMA
     Dosage: 10 MILLIGRAM
     Route: 048

REACTIONS (15)
  - Neutropenia [Unknown]
  - Thrombocytopenia [Unknown]
  - Toxicity to various agents [Unknown]
  - Anaemia [Unknown]
  - Death [Fatal]
  - Rash [Unknown]
  - Nausea [Unknown]
  - Dysgeusia [Unknown]
  - General physical health deterioration [Unknown]
  - Febrile neutropenia [Unknown]
  - Syncope [Unknown]
  - Leukopenia [Unknown]
  - Dizziness [Unknown]
  - Fatigue [Unknown]
  - Non-Hodgkin^s lymphoma [Unknown]
